FAERS Safety Report 19782037 (Version 2)
Quarter: 2021Q3

REPORT INFORMATION
  Report Type: Other
  Country: SE (occurrence: SE)
  Receive Date: 20210903
  Receipt Date: 20210910
  Transmission Date: 20211014
  Serious: Yes (Other)
  Sender: FDA-Public Use
  Company Number: SE-CELLTRION INC.-2021SE011771

PATIENT

DRUGS (3)
  1. AZATHIOPRINE. [Concomitant]
     Active Substance: AZATHIOPRINE
     Dosage: 50 MG 2X1 (DOSE FORM: TABLETTER)
     Route: 048
  2. SALAZOPYRIN 500 MG TABLETT [Concomitant]
     Dosage: 500 MG 3X2 (DOSE FORM: TABLETT)
     Route: 048
  3. REMSIMA [Suspect]
     Active Substance: INFLIXIMAB
     Indication: COLITIS ULCERATIVE
     Dosage: 300 MG, EVERY 8 WEEKS
     Route: 042
     Dates: start: 20190412, end: 20210712

REACTIONS (3)
  - Drug ineffective [Unknown]
  - Drug specific antibody present [Unknown]
  - Arthralgia [Unknown]

NARRATIVE: CASE EVENT DATE: 20210712
